FAERS Safety Report 4656955-3 (Version None)
Quarter: 2005Q2

REPORT INFORMATION
  Report Type: 
  Country: None (occurrence: None)
  Receive Date: 20050506
  Receipt Date: 20050427
  Transmission Date: 20051028
  Serious: Yes (Other)
  Sender: FDA-Public Use
  Company Number: HQWYE422828APR05

PATIENT
  Age: 53 Year
  Sex: Male

DRUGS (9)
  1. RAPAMUNE [Suspect]
     Indication: PROPHYLAXIS AGAINST TRANSPLANT REJECTION
     Dosage: SEE IMAGE
     Route: 048
     Dates: start: 20050406, end: 20050407
  2. RAPAMUNE [Suspect]
     Indication: PROPHYLAXIS AGAINST TRANSPLANT REJECTION
     Dosage: SEE IMAGE
     Route: 048
     Dates: start: 20050408, end: 20050411
  3. RAPAMUNE [Suspect]
     Indication: PROPHYLAXIS AGAINST TRANSPLANT REJECTION
     Dosage: SEE IMAGE
     Route: 048
     Dates: start: 20050412, end: 20050420
  4. RAPAMUNE [Suspect]
     Indication: PROPHYLAXIS AGAINST TRANSPLANT REJECTION
     Dosage: SEE IMAGE
     Route: 048
     Dates: start: 20050421
  5. PROGRAF [Suspect]
     Dosage: 0.5 MG 2X PER 1 DAY
     Route: 048
     Dates: start: 20050302, end: 20050406
  6. ARGATROBAN (ARGATROBAN) [Concomitant]
  7. PREDNISONE [Concomitant]
  8. INSULIN [Concomitant]
  9. LOSEC (OMEPRAZOLE) [Concomitant]

REACTIONS (3)
  - BLINDNESS CORTICAL [None]
  - CONSCIOUSNESS FLUCTUATING [None]
  - ELECTROENCEPHALOGRAM ABNORMAL [None]
